FAERS Safety Report 8573193 (Version 2)
Quarter: 2012Q4

REPORT INFORMATION
  Report Type: 
  Country: US (occurrence: US)
  Receive Date: 20120522
  Receipt Date: 20121122
  Transmission Date: 20130627
  Serious: Yes (Death, Hospitalization)
  Sender: FDA-Public Use
  Company Number: US-B.I. PHARMACEUTICALS,INC./RIDGEFIELD-2012-BP-10852BP

PATIENT
  Age: 77 Year
  Sex: Male
  Weight: 87.5 kg

DRUGS (7)
  1. PRADAXA [Suspect]
     Indication: ATRIAL FIBRILLATION
     Dosage: 300 mg
     Route: 048
     Dates: start: 201112, end: 20120514
  2. ASPIRIN [Suspect]
     Dosage: 325 mg
     Route: 048
  3. AMIODARONE [Concomitant]
     Dosage: 200 mg
     Route: 048
  4. LANOXIN [Concomitant]
     Dosage: 0.125 mg
     Route: 048
  5. LASIX [Concomitant]
     Dosage: 80 mg
     Route: 048
  6. LOPRESSOR [Concomitant]
     Dosage: 50 mg
     Route: 048
  7. MULTIPLE VITAMIN [Concomitant]

REACTIONS (3)
  - Gastrointestinal haemorrhage [Fatal]
  - Blood creatinine increased [Unknown]
  - Creatinine renal clearance decreased [Unknown]
